FAERS Safety Report 9718931 (Version 3)
Quarter: 2014Q1

REPORT INFORMATION
  Report Type: Report from Study
  Country: CA (occurrence: CA)
  Receive Date: 20131127
  Receipt Date: 20140107
  Transmission Date: 20141002
  Serious: Yes (Death)
  Sender: FDA-Public Use
  Company Number: CA-ABBVIE-13P-028-1174020-00

PATIENT
  Age: 65 Year
  Sex: Female
  Weight: 89.89 kg

DRUGS (15)
  1. HUMIRA [Suspect]
     Indication: PSORIASIS
     Route: 058
     Dates: start: 20120321, end: 20120321
  2. HUMIRA [Suspect]
     Route: 058
     Dates: start: 20120327, end: 20120424
  3. MICARDIS [Concomitant]
     Indication: HYPERTENSION
     Dates: start: 2000
  4. ADALAT XL [Concomitant]
     Indication: HYPERTENSION
     Dates: start: 1995
  5. HYDROCHLOROTHIAZIDE [Concomitant]
     Indication: HYPERTENSION
     Dates: start: 1995
  6. SLOW K [Concomitant]
     Indication: MINERAL SUPPLEMENTATION
     Dates: start: 1995
  7. METFORMIN [Concomitant]
     Indication: DIABETES MELLITUS
     Route: 048
     Dates: start: 2000
  8. METFORMIN [Concomitant]
     Dosage: LUNCH TIME
     Route: 048
     Dates: start: 2000
  9. GLYBURIDE [Concomitant]
     Indication: DIABETES MELLITUS
     Dates: start: 2000
  10. TERAZOSIN [Concomitant]
     Indication: HYPERTENSION
     Route: 048
     Dates: start: 1995
  11. LIPITOR [Concomitant]
     Indication: HYPERLIPIDAEMIA
     Route: 048
     Dates: start: 2005
  12. FENOFIBRATE [Concomitant]
     Indication: HYPERLIPIDAEMIA
     Route: 048
     Dates: start: 2005
  13. VANCOMYCIN [Concomitant]
     Indication: PSORIASIS
     Dates: start: 20120602, end: 20131003
  14. VANCOMYCIN [Concomitant]
     Indication: IMPETIGO
  15. STELARA [Concomitant]
     Indication: PSORIASIS
     Dates: start: 20120507

REACTIONS (1)
  - Death [Fatal]
